FAERS Safety Report 6707022-6 (Version None)
Quarter: 2010Q2

REPORT INFORMATION
  Report Type: 
  Country: None (occurrence: None)
  Receive Date: 20100430
  Receipt Date: 20100430
  Transmission Date: 20101027
  Serious: Yes (Hospitalization)
  Sender: FDA-Public Use
  Company Number: None

PATIENT
  Sex: Male
  Weight: 95 kg

DRUGS (2)
  1. SOLIRIS [Suspect]
     Indication: PROPHYLAXIS AGAINST TRANSPLANT REJECTION
     Dosage: 1200 MG ONCE IV 600 MG ONCE IV
     Route: 042
     Dates: start: 20100408
  2. SOLIRIS [Suspect]
     Indication: PROPHYLAXIS AGAINST TRANSPLANT REJECTION
     Dosage: 1200 MG ONCE IV 600 MG ONCE IV
     Route: 042
     Dates: start: 20100409

REACTIONS (8)
  - ATRIAL FLUTTER [None]
  - BLOOD CREATININE INCREASED [None]
  - DEVICE DISLOCATION [None]
  - DIARRHOEA [None]
  - HYDRONEPHROSIS [None]
  - OESOPHAGEAL CANDIDIASIS [None]
  - OESOPHAGITIS ULCERATIVE [None]
  - PYREXIA [None]
